FAERS Safety Report 8958672 (Version 1)
Quarter: 2012Q4

REPORT INFORMATION
  Report Type: Spontaneous
  Country: US (occurrence: None)
  Receive Date: 20121206
  Receipt Date: 20121206
  Transmission Date: 20130627
  Serious: No
  Sender: FDA-Public Use
  Company Number: None

PATIENT
  Age: 66 Year
  Sex: Female

DRUGS (1)
  1. ZITHROMAX [Suspect]
     Route: 042
     Dates: start: 20121120, end: 20121120

REACTIONS (1)
  - Injection site induration [None]
